FAERS Safety Report 4567964-7 (Version None)
Quarter: 2005Q1

REPORT INFORMATION
  Report Type: 
  Country: None (occurrence: None)
  Receive Date: 20050202
  Receipt Date: 20050126
  Transmission Date: 20050727
  Serious: Yes (Hospitalization)
  Sender: FDA-Public Use
  Company Number: US-JNJFOC-20050106184

PATIENT
  Age: 42 Year
  Sex: Female
  Weight: 79.83 kg

DRUGS (27)
  1. NATRECOR [Suspect]
     Route: 042
  2. PROGRAF [Concomitant]
  3. PREDNISONE [Concomitant]
  4. ZYVOX [Concomitant]
  5. MAGNESIUM OXIDE [Concomitant]
  6. MULTI-VITAMIN [Concomitant]
  7. MULTI-VITAMIN [Concomitant]
  8. MULTI-VITAMIN [Concomitant]
  9. MULTI-VITAMIN [Concomitant]
  10. MULTI-VITAMIN [Concomitant]
  11. MULTI-VITAMIN [Concomitant]
  12. MULTI-VITAMIN [Concomitant]
  13. MULTI-VITAMIN [Concomitant]
  14. DEMIDEX [Concomitant]
  15. FERROUS SULFATE TAB [Concomitant]
  16. METOPROLOL [Concomitant]
  17. ISOSORBIDE DINITRATE [Concomitant]
  18. HYDRALAZINE HCL [Concomitant]
  19. K-DUR 10 [Concomitant]
  20. GUAIFENESIN [Concomitant]
  21. ALUMINUM HYDROXIDE AND MAGNESIUM TRISILICATE [Concomitant]
  22. ALUMINUM HYDROXIDE AND MAGNESIUM TRISILICATE [Concomitant]
  23. MILK OF MAGNESIA [Concomitant]
  24. NITROSTAT [Concomitant]
  25. PERCOCET [Concomitant]
  26. PERCOCET [Concomitant]
  27. TYLENOL [Concomitant]

REACTIONS (1)
  - THROMBOCYTOPENIA [None]
